FAERS Safety Report 11130406 (Version 1)
Quarter: 2015Q2

REPORT INFORMATION
  Report Type: Spontaneous
  Country: FR (occurrence: FR)
  Receive Date: 20150522
  Receipt Date: 20150522
  Transmission Date: 20150821
  Serious: Yes (Life-Threatening, Hospitalization)
  Sender: FDA-Public Use
  Company Number: FR-PFIZER INC-2015171723

PATIENT
  Age: 62 Year
  Sex: Male

DRUGS (5)
  1. SEVIKAR [Concomitant]
     Active Substance: AMLODIPINE BESYLATE\OLMESARTAN MEDOXOMIL
     Dosage: 150 MG, UNK
     Dates: end: 20141017
  2. PRADAXA [Concomitant]
     Active Substance: DABIGATRAN ETEXILATE MESYLATE
     Dosage: 150 MG, UNK
     Dates: start: 20141002, end: 20141017
  3. BISOPROLOL FUMARATE. [Suspect]
     Active Substance: BISOPROLOL FUMARATE
     Indication: ARRHYTHMIA
     Dosage: 2.5 MG, 2X/DAY
     Route: 048
     Dates: start: 20141002, end: 20141017
  4. CORDARONE [Suspect]
     Active Substance: AMIODARONE HYDROCHLORIDE
     Dosage: 200 MG, DAILY
     Route: 048
     Dates: start: 20141002, end: 20141017
  5. METFORMIN HCL [Suspect]
     Active Substance: METFORMIN HYDROCHLORIDE
     Dosage: 1000 MG, 3X/DAY
     Route: 048
     Dates: end: 20141017

REACTIONS (9)
  - Hyponatraemia [Unknown]
  - Atrioventricular block [Unknown]
  - Cardiogenic shock [Recovered/Resolved]
  - Acute kidney injury [Unknown]
  - International normalised ratio increased [Unknown]
  - Haematemesis [Unknown]
  - Electrocardiogram QT prolonged [Unknown]
  - Bradycardia [Recovered/Resolved]
  - Hyperkalaemia [Unknown]

NARRATIVE: CASE EVENT DATE: 20141017
